FAERS Safety Report 18730129 (Version 1)
Quarter: 2021Q1

REPORT INFORMATION
  Report Type: Report from Study
  Country: US (occurrence: US)
  Receive Date: 20210112
  Receipt Date: 20210112
  Transmission Date: 20210419
  Serious: Yes (Hospitalization)
  Sender: FDA-Public Use
  Company Number: NVSC2021US002716

PATIENT
  Sex: Female
  Weight: 20 kg

DRUGS (1)
  1. ILARIS [Suspect]
     Active Substance: CANAKINUMAB
     Indication: JUVENILE IDIOPATHIC ARTHRITIS
     Dosage: 150 MG (EVERY 28 DAYS)
     Route: 058
     Dates: start: 20201208

REACTIONS (1)
  - Inappropriate schedule of product administration [Unknown]
